FAERS Safety Report 5393947-3 (Version None)
Quarter: 2007Q3

REPORT INFORMATION
  Report Type: 
  Country: None (occurrence: None)
  Receive Date: 20070723
  Receipt Date: 20061127
  Transmission Date: 20080115
  Serious: No
  Sender: FDA-Public Use
  Company Number: A0628683A

PATIENT
  Sex: Female

DRUGS (8)
  1. AVANDIA [Suspect]
     Dosage: 4MG PER DAY
     Route: 048
     Dates: start: 20061115
  2. AMARYL [Concomitant]
  3. OMEPRAZOLE [Concomitant]
  4. LASIX [Concomitant]
  5. DECADRON [Concomitant]
  6. SYSTANE [Concomitant]
  7. ASPIRIN [Concomitant]
  8. VITAMIN [Concomitant]

REACTIONS (1)
  - PRURITUS [None]
